FAERS Safety Report 11372883 (Version 1)
Quarter: 2015Q3

REPORT INFORMATION
  Report Type: Spontaneous
  Country: US (occurrence: US)
  Receive Date: 20150811
  Receipt Date: 20150811
  Transmission Date: 20151125
  Serious: No
  Sender: FDA-Public Use
  Company Number: US-ELI_LILLY_AND_COMPANY-US201111000573

PATIENT
  Sex: Male
  Weight: 79.37 kg

DRUGS (5)
  1. MULTI-VIT [Concomitant]
     Active Substance: VITAMINS
  2. CIALIS [Suspect]
     Active Substance: TADALAFIL
     Indication: ERECTILE DYSFUNCTION
     Dosage: 5 MG, UNK
     Route: 048
  3. GLUCOSAMINE [Concomitant]
     Active Substance: GLUCOSAMINE
  4. CIALIS [Suspect]
     Active Substance: TADALAFIL
     Dosage: 10 MG, PRN
  5. FLAXSEED [Concomitant]
     Active Substance: FLAX SEED

REACTIONS (1)
  - Tinnitus [Unknown]
